FAERS Safety Report 11922073 (Version 2)
Quarter: 2016Q1

REPORT INFORMATION
  Report Type: Spontaneous
  Country: US (occurrence: US)
  Receive Date: 20160115
  Receipt Date: 20160310
  Transmission Date: 20160526
  Serious: No
  Sender: FDA-Public Use
  Company Number: US-009507513-1601USA000857

PATIENT
  Age: 27 Year
  Sex: Female
  Weight: 65.3 kg

DRUGS (3)
  1. DIAMOX SEQUELS [Concomitant]
     Active Substance: ACETAZOLAMIDE
     Dosage: 250 MG, UNK
     Route: 048
  2. VITAMIN D [Concomitant]
     Active Substance: CHOLECALCIFEROL
     Dosage: UNK IU, UNK
  3. NEXPLANON [Suspect]
     Active Substance: ETONOGESTREL
     Indication: CONTRACEPTION
     Dosage: UNK
     Route: 059
     Dates: start: 20140915

REACTIONS (10)
  - Thrombophlebitis [Unknown]
  - Limb discomfort [Unknown]
  - Implant site pain [Recovering/Resolving]
  - Thrombophlebitis superficial [Recovered/Resolved]
  - Pain [Unknown]
  - Implant site bruising [Unknown]
  - Tenderness [Unknown]
  - Pain [Unknown]
  - Contusion [Unknown]
  - Pain in extremity [Unknown]

NARRATIVE: CASE EVENT DATE: 20151226
